FAERS Safety Report 9342520 (Version 1)
Quarter: 2013Q2

REPORT INFORMATION
  Report Type: Spontaneous
  Country: GB (occurrence: GB)
  Receive Date: 20130611
  Receipt Date: 20130611
  Transmission Date: 20140414
  Serious: Yes (Other)
  Sender: FDA-Public Use
  Company Number: GB-PFIZER INC-2013166023

PATIENT
  Age: 65 Year
  Sex: Male

DRUGS (1)
  1. LYRICA [Suspect]
     Dosage: 100 MG TOTAL

REACTIONS (3)
  - Intracranial pressure increased [Unknown]
  - Somnolence [Unknown]
  - Impaired driving ability [Unknown]
